FAERS Safety Report 24203779 (Version 1)
Quarter: 2024Q3

REPORT INFORMATION
  Report Type: Spontaneous
  Country: CA (occurrence: CA)
  Receive Date: 20240813
  Receipt Date: 20240813
  Transmission Date: 20241016
  Serious: Yes (Hospitalization, Other)
  Sender: AUROBINDO
  Company Number: CA-AUROBINDO-AUR-APL-2024-039893

PATIENT
  Age: 34 Year
  Sex: Female
  Weight: 70 kg

DRUGS (4)
  1. CIPROFLOXACIN [Suspect]
     Active Substance: CIPROFLOXACIN
     Indication: Anal abscess
     Dosage: 500 MILLIGRAM, TWO TIMES A DAY
     Route: 065
  2. FLAGYL [Suspect]
     Active Substance: METRONIDAZOLE\METRONIDAZOLE HYDROCHLORIDE
     Indication: Anal abscess
     Dosage: 500 MILLIGRAM, TWO TIMES A DAY
     Route: 065
  3. RENFLEXIS [Suspect]
     Active Substance: INFLIXIMAB-ABDA
     Indication: Crohn^s disease
     Dosage: UNK
     Route: 065
  4. RENFLEXIS [Suspect]
     Active Substance: INFLIXIMAB-ABDA
     Indication: Crohn^s disease
     Dosage: 600 MILLIGRAM, 1 EVERY 6 WEEKS
     Route: 042

REACTIONS (7)
  - Anal fistula [Not Recovered/Not Resolved]
  - Abdominal discomfort [Not Recovered/Not Resolved]
  - Anal abscess [Not Recovered/Not Resolved]
  - Anal fissure [Not Recovered/Not Resolved]
  - Impaired work ability [Not Recovered/Not Resolved]
  - Incorrect drug administration rate [Not Recovered/Not Resolved]
  - Product use issue [Not Recovered/Not Resolved]
